FAERS Safety Report 10341592 (Version 1)
Quarter: 2014Q3

REPORT INFORMATION
  Report Type: Spontaneous
  Country: US (occurrence: US)
  Receive Date: 20140725
  Receipt Date: 20140725
  Transmission Date: 20150326
  Serious: No
  Sender: FDA-Public Use
  Company Number: US-AMGEN-USASP2014054362

PATIENT
  Age: 51 Year
  Sex: Female

DRUGS (2)
  1. ENBREL [Suspect]
     Active Substance: ETANERCEPT
     Indication: FIBROMYALGIA
  2. ENBREL [Suspect]
     Active Substance: ETANERCEPT
     Indication: LUNG DISORDER
     Dosage: 50 MG, QWK
     Route: 065
     Dates: start: 20130601, end: 201405

REACTIONS (1)
  - Drug ineffective [Not Recovered/Not Resolved]

NARRATIVE: CASE EVENT DATE: 20130601
